FAERS Safety Report 7788057-1 (Version None)
Quarter: 2011Q3

REPORT INFORMATION
  Report Type: 
  Country: None (occurrence: None)
  Receive Date: 20110930
  Receipt Date: 20110923
  Transmission Date: 20111222
  Serious: Yes (Hospitalization, Other)
  Sender: FDA-Public Use
  Company Number: US-ELI_LILLY_AND_COMPANY-US201109004634

PATIENT
  Sex: Female

DRUGS (2)
  1. HUMALOG [Suspect]
     Indication: TYPE 1 DIABETES MELLITUS
     Dosage: UNK
  2. HUMALOG [Suspect]
     Dosage: UNK
     Dates: start: 20090101

REACTIONS (2)
  - LOWER LIMB FRACTURE [None]
  - FEMUR FRACTURE [None]
